FAERS Safety Report 12695456 (Version 2)
Quarter: 2016Q3

REPORT INFORMATION
  Report Type: Other
  Country: BR (occurrence: BR)
  Receive Date: 20160829
  Receipt Date: 20160908
  Transmission Date: 20161109
  Serious: Yes (Death, Hospitalization, Other)
  Sender: FDA-Public Use
  Company Number: BR-SHIRE-BR201611234

PATIENT
  Age: 10 Year
  Sex: Male
  Weight: 24 kg

DRUGS (2)
  1. ELAPRASE [Suspect]
     Active Substance: IDURSULFASE
     Indication: MUCOPOLYSACCHARIDOSIS II
     Dosage: 12 MG (2 VIALS), UNKNOWN
     Route: 041
     Dates: start: 201408
  2. RISPERIDONE. [Concomitant]
     Active Substance: RISPERIDONE
     Indication: NERVOUSNESS
     Dosage: 1 DF, 2X/DAY:BID (MORNING AND NIGHT)
     Route: 065

REACTIONS (11)
  - Intentional self-injury [Unknown]
  - Hypophagia [Unknown]
  - Drug ineffective [Unknown]
  - Cerebral thrombosis [Fatal]
  - Insomnia [Unknown]
  - Fall [Unknown]
  - Cardiac arrest [Fatal]
  - Weight decreased [Unknown]
  - Throat irritation [Unknown]
  - Pyrexia [Unknown]
  - Nervousness [Unknown]

NARRATIVE: CASE EVENT DATE: 201408
